FAERS Safety Report 5575126-X (Version None)
Quarter: 2007Q4

REPORT INFORMATION
  Report Type: 
  Country: None (occurrence: None)
  Receive Date: 20071227
  Receipt Date: 20071217
  Transmission Date: 20080405
  Serious: Yes (Disabling, Other)
  Sender: FDA-Public Use
  Company Number: FR-PFIZER INC-2007107456

PATIENT
  Age: 80 Year
  Sex: Female

DRUGS (1)
  1. TAHOR [Suspect]

REACTIONS (3)
  - ACTIVITIES OF DAILY LIVING IMPAIRED [None]
  - MUSCLE DISORDER [None]
  - MUSCLE SPASMS [None]
